FAERS Safety Report 5422094-7 (Version None)
Quarter: 2007Q3

REPORT INFORMATION
  Report Type: 
  Country: None (occurrence: None)
  Receive Date: 20070821
  Receipt Date: 20070821
  Transmission Date: 20080115
  Serious: Yes (Life-Threatening, Hospitalization, Other)
  Sender: FDA-Public Use
  Company Number: None

PATIENT
  Age: 36 Year
  Sex: Female
  Weight: 65.7716 kg

DRUGS (2)
  1. CHANTIX [Suspect]
     Indication: SMOKING CESSATION THERAPY
     Dosage: .5 MG TWICE A DAY DAILY FOR 7 DAYS PO
     Route: 048
     Dates: start: 20070209, end: 20070222
  2. CHANTIX [Suspect]
     Indication: SMOKING CESSATION THERAPY
     Dosage: .1 MG TWICE A DAY DAILY UNTIL QUIT PO
     Route: 048
     Dates: start: 20070316, end: 20070319

REACTIONS (8)
  - ASTHENIA [None]
  - DYSPHASIA [None]
  - DYSSTASIA [None]
  - HYPERKALAEMIA [None]
  - MUSCLE TIGHTNESS [None]
  - NAUSEA [None]
  - PARAESTHESIA [None]
  - PARAESTHESIA ORAL [None]
